FAERS Safety Report 6736615-5 (Version None)
Quarter: 2010Q2

REPORT INFORMATION
  Report Type: 
  Country: None (occurrence: None)
  Receive Date: 20100521
  Receipt Date: 20100511
  Transmission Date: 20101027
  Serious: Yes (Death)
  Sender: FDA-Public Use
  Company Number: IN-GENENTECH-301029

PATIENT
  Age: 65 Year
  Sex: Male

DRUGS (1)
  1. XOLAIR [Suspect]
     Indication: ASTHMA
     Dosage: 150 MG, UNK

REACTIONS (7)
  - BLOOD UREA INCREASED [None]
  - CREPITATIONS [None]
  - DEATH [None]
  - HYPOXIA [None]
  - PO2 DECREASED [None]
  - RESPIRATORY ACIDOSIS [None]
  - TACHYCARDIA [None]
